FAERS Safety Report 22041793 (Version 1)
Quarter: 2023Q1

REPORT INFORMATION
  Report Type: Spontaneous
  Country: CN (occurrence: CN)
  Receive Date: 20230227
  Receipt Date: 20230227
  Transmission Date: 20230418
  Serious: Yes (Other)
  Sender: FDA-Public Use
  Company Number: CN-Merck Healthcare KGaA-9384559

PATIENT
  Age: 75 Year
  Sex: Male

DRUGS (5)
  1. ERBITUX [Suspect]
     Active Substance: CETUXIMAB
     Indication: Rectal cancer metastatic
     Dosage: UNK UNK, 2/M
     Route: 065
     Dates: start: 202201
  2. LEUCOVORIN [Suspect]
     Active Substance: LEUCOVORIN
     Indication: Rectal cancer metastatic
     Dosage: UNK, 2/M
     Route: 065
     Dates: start: 20220118
  3. FLUOROURACIL [Suspect]
     Active Substance: FLUOROURACIL
     Indication: Rectal cancer metastatic
     Dosage: UNK, 2/M
     Route: 065
     Dates: start: 20220118
  4. OXALIPLATIN [Suspect]
     Active Substance: OXALIPLATIN
     Indication: Rectal cancer metastatic
     Dosage: UNK UNK, UNKNOWN
     Route: 065
     Dates: start: 202006, end: 202009
  5. OXALIPLATIN [Suspect]
     Active Substance: OXALIPLATIN
     Dosage: UNK UNK, 2/M
     Route: 065
     Dates: start: 20220118

REACTIONS (3)
  - Myelosuppression [Unknown]
  - Stoma site haemorrhage [Unknown]
  - Off label use [Unknown]
